FAERS Safety Report 15139397 (Version 2)
Quarter: 2018Q3

REPORT INFORMATION
  Report Type: Spontaneous
  Country: US (occurrence: US)
  Receive Date: 20180713
  Receipt Date: 20180725
  Transmission Date: 20181010
  Serious: Yes (Hospitalization, Other)
  Sender: FDA-Public Use
  Company Number: US-ACCORD-069575

PATIENT
  Age: 26 Year
  Sex: Female

DRUGS (7)
  1. ACETYLSALICYLIC ACID [Suspect]
     Active Substance: ASPIRIN
  2. ACETYLCYSTEINE. [Concomitant]
     Active Substance: ACETYLCYSTEINE
  3. QUETIAPINE. [Suspect]
     Active Substance: QUETIAPINE
  4. SODIUM BICARBONATE. [Concomitant]
     Active Substance: SODIUM BICARBONATE
  5. PROPOFOL. [Concomitant]
     Active Substance: PROPOFOL
  6. BETAMETHASONE. [Concomitant]
     Active Substance: BETAMETHASONE
  7. PARACETAMOL [Suspect]
     Active Substance: ACETAMINOPHEN

REACTIONS (4)
  - Suicide attempt [Unknown]
  - Overdose [Unknown]
  - Respiratory failure [Recovered/Resolved]
  - Maternal exposure during pregnancy [Unknown]
